FAERS Safety Report 24953366 (Version 3)
Quarter: 2025Q1

REPORT INFORMATION
  Report Type: Report from Study
  Country: US (occurrence: US)
  Receive Date: 20250211
  Receipt Date: 20250325
  Transmission Date: 20250409
  Serious: Yes (Other)
  Sender: BRISTOL-MYERS SQUIBB COMPANY
  Company Number: US-BRISTOL-MYERS SQUIBB COMPANY-2025-018462

PATIENT
  Age: 7 Year
  Sex: Female

DRUGS (2)
  1. ORENCIA [Suspect]
     Active Substance: ABATACEPT
     Indication: Arthritis
     Dosage: DOSE : 125 MG;     FREQ : WEEKLY
     Route: 058
     Dates: start: 20241016
  2. ORENCIA [Suspect]
     Active Substance: ABATACEPT
     Indication: Dermatomyositis

REACTIONS (3)
  - Device safety feature issue [Unknown]
  - Device leakage [Unknown]
  - Device deployment issue [Unknown]

NARRATIVE: CASE EVENT DATE: 20250130
